FAERS Safety Report 10548523 (Version 1)
Quarter: 2014Q4

REPORT INFORMATION
  Report Type: Report from Study
  Country: US (occurrence: US)
  Receive Date: 20141028
  Receipt Date: 20141028
  Transmission Date: 20150529
  Serious: No
  Sender: FDA-Public Use
  Company Number: US-AMGEN-USASL2014081275

PATIENT
  Sex: Female
  Weight: 71.2 kg

DRUGS (1)
  1. ENBREL [Suspect]
     Active Substance: ETANERCEPT
     Indication: RHEUMATOID ARTHRITIS
     Dosage: 50 MG, QWK
     Route: 058
     Dates: start: 2004

REACTIONS (6)
  - Selective IgA immunodeficiency [Unknown]
  - Sinusitis [Unknown]
  - Headache [Unknown]
  - Cystitis [Unknown]
  - Injection site pruritus [Unknown]
  - Injection site erythema [Unknown]
